FAERS Safety Report 20735421 (Version 2)
Quarter: 2022Q2

REPORT INFORMATION
  Report Type: Report from Study
  Country: BR (occurrence: BR)
  Receive Date: 20220421
  Receipt Date: 20220505
  Transmission Date: 20220721
  Serious: Yes (Hospitalization, Other)
  Sender: FDA-Public Use
  Company Number: BR-JNJFOC-20200736413

PATIENT
  Age: 50 Year
  Sex: Female

DRUGS (3)
  1. SIMPONI [Suspect]
     Active Substance: GOLIMUMAB
     Indication: Ankylosing spondylitis
     Route: 058
     Dates: start: 20180220, end: 2019
  2. SIMPONI [Suspect]
     Active Substance: GOLIMUMAB
     Route: 058
     Dates: end: 202111
  3. LOSARTAN [Concomitant]
     Active Substance: LOSARTAN

REACTIONS (6)
  - Urinary tract infection [Not Recovered/Not Resolved]
  - Accident [Not Recovered/Not Resolved]
  - Upper limb fracture [Unknown]
  - Dental operation [Recovering/Resolving]
  - Arthralgia [Unknown]
  - Pain [Not Recovered/Not Resolved]

NARRATIVE: CASE EVENT DATE: 20191101
